FAERS Safety Report 13388510 (Version 1)
Quarter: 2017Q1

REPORT INFORMATION
  Report Type: Report from Study
  Country: DE (occurrence: DE)
  Receive Date: 20170330
  Receipt Date: 20170330
  Transmission Date: 20170429
  Serious: Yes (Other)
  Sender: FDA-Public Use
  Company Number: DE-PFIZER INC-2017128668

PATIENT
  Age: 18 Year
  Sex: Female

DRUGS (2)
  1. IRINOTECAN HCL [Suspect]
     Active Substance: IRINOTECAN HYDROCHLORIDE
     Indication: EWING^S SARCOMA
     Dosage: MAX: 90 MG/M2, ON DAYS 3- 5 AND 10-12
  2. TRABECTEDIN [Suspect]
     Active Substance: TRABECTEDIN
     Indication: EWING^S SARCOMA
     Dosage: MAX: 1.5 MG/M2, ON DAY 1
     Route: 042

REACTIONS (1)
  - Hepatotoxicity [Unknown]
